FAERS Safety Report 20596836 (Version 2)
Quarter: 2022Q2

REPORT INFORMATION
  Report Type: Report from Study
  Country: US (occurrence: US)
  Receive Date: 20220315
  Receipt Date: 20220414
  Transmission Date: 20220721
  Serious: Yes (Other)
  Sender: FDA-Public Use
  Company Number: US-BIOVITRUM-2022US00380

PATIENT
  Sex: Male

DRUGS (2)
  1. KINERET [Suspect]
     Active Substance: ANAKINRA
     Indication: Rheumatoid arthritis
     Route: 058
     Dates: start: 20211209
  2. PREDNISONE [Concomitant]
     Active Substance: PREDNISONE

REACTIONS (16)
  - Cataract [Unknown]
  - Blood creatinine increased [Unknown]
  - Contusion [Unknown]
  - Erythema [Unknown]
  - Arthralgia [Unknown]
  - Gout [Unknown]
  - Blood pressure increased [Unknown]
  - Blood magnesium decreased [Unknown]
  - Injection site urticaria [Unknown]
  - Injection site bruising [Unknown]
  - Injection site pruritus [Unknown]
  - Injection site erythema [Unknown]
  - Injection site pain [Unknown]
  - Injection site reaction [Unknown]
  - Injection site rash [Unknown]
  - Drug ineffective [Unknown]
